FAERS Safety Report 8552947-2 (Version None)
Quarter: 2012Q3

REPORT INFORMATION
  Report Type: 
  Country: None (occurrence: None)
  Receive Date: 20120731
  Receipt Date: 20120730
  Transmission Date: 20120928
  Serious: Yes (Death)
  Sender: FDA-Public Use
  Company Number: PHHY2012AU059918

PATIENT
  Sex: Female

DRUGS (11)
  1. ASPIRIN [Concomitant]
  2. HYDROCORTISONE ACETATE [Concomitant]
  3. PANAMAX [Concomitant]
  4. ZOLEDRONOC ACID [Suspect]
     Dosage: 5 MG, UNK
     Route: 042
     Dates: start: 20100424
  5. LEVOTHYROXINE SODIUM [Concomitant]
  6. RISPERDAL [Concomitant]
  7. ATENOLOL [Concomitant]
  8. FLUTICASONE PROPIONATE/SALMETEROL [Concomitant]
  9. ALBUTEROL SULATE [Concomitant]
  10. SPIRIVA [Concomitant]
  11. ZOLEDRONOC ACID [Suspect]
     Dosage: 5 MG, UNK
     Route: 042
     Dates: start: 20110829

REACTIONS (2)
  - DEATH [None]
  - DYSPNOEA [None]
